FAERS Safety Report 8263016-3 (Version None)
Quarter: 2012Q1

REPORT INFORMATION
  Report Type: 
  Country: None (occurrence: None)
  Receive Date: 20120327
  Receipt Date: 20090206
  Transmission Date: 20120608
  Serious: Yes (Hospitalization, Other)
  Sender: FDA-Public Use
  Company Number: PHEH2008US11063

PATIENT
  Age: 72 Year
  Sex: Female
  Weight: 81.8 kg

DRUGS (15)
  1. GLEEVEC [Suspect]
     Indication: CHRONIC MYELOID LEUKAEMIA
     Dosage: 400 MG, QD, ORAL
     Route: 048
     Dates: start: 20081117, end: 20081208
  2. MULTIVITAMIN ^LAPPE^ (VITAMIN NOS) [Concomitant]
  3. METFORMIN HCL [Concomitant]
  4. SIMVASTATIN [Concomitant]
  5. NOVOLOG [Concomitant]
  6. VITAMIN D [Concomitant]
  7. AMLODIPINE [Concomitant]
  8. ALLOPURINOL [Concomitant]
  9. LANTUS [Concomitant]
  10. LEVOTHYROXINE SODIUM [Concomitant]
  11. NEXIUM [Concomitant]
  12. SERTRALINE HYDROCHLORIDE [Concomitant]
  13. ADVAIR HFA [Concomitant]
  14. PREDNISONE TAB [Concomitant]
  15. MOEXIPRIL HYDROCHLORIDE [Concomitant]

REACTIONS (19)
  - BLOOD PRESSURE INCREASED [None]
  - BLOOD PRESSURE DECREASED [None]
  - BLOOD UREA INCREASED [None]
  - DIALYSIS [None]
  - DYSPNOEA [None]
  - ASTHENIA [None]
  - PYREXIA [None]
  - MALAISE [None]
  - HAEMOGLOBIN DECREASED [None]
  - URINE ANALYSIS ABNORMAL [None]
  - BLOOD CREATININE INCREASED [None]
  - NAUSEA [None]
  - DEHYDRATION [None]
  - BLOOD ALBUMIN DECREASED [None]
  - BLOOD CREATINE PHOSPHOKINASE DECREASED [None]
  - CREATININE RENAL CLEARANCE DECREASED [None]
  - LETHARGY [None]
  - URINE SODIUM DECREASED [None]
  - RENAL FAILURE ACUTE [None]
